FAERS Safety Report 4873703-2 (Version None)
Quarter: 2006Q1

REPORT INFORMATION
  Report Type: 
  Country: None (occurrence: None)
  Receive Date: 20060104
  Receipt Date: 20060104
  Transmission Date: 20060701
  Serious: Yes (Life-Threatening)
  Sender: FDA-Public Use
  Company Number: None

PATIENT
  Age: 29 Year
  Sex: Male
  Weight: 100 kg

DRUGS (3)
  1. COCAINE [Suspect]
     Dosage: 3 DAY BINGE
  2. XANAX [Concomitant]
  3. LORTAB [Concomitant]

REACTIONS (4)
  - CHEST PAIN [None]
  - DRUG ABUSER [None]
  - MULTIPLE DRUG OVERDOSE [None]
  - MYOCARDIAL INFARCTION [None]
